FAERS Safety Report 19746075 (Version 1)
Quarter: 2021Q3

REPORT INFORMATION
  Report Type: Spontaneous
  Country: US (occurrence: US)
  Receive Date: 20210825
  Receipt Date: 20210825
  Transmission Date: 20211014
  Serious: No
  Sender: FDA-Public Use
  Company Number: US-MYLANLABS-2021M1047522

PATIENT
  Sex: Female

DRUGS (1)
  1. ESTRADIOL VAGINAL CREAM USP [Suspect]
     Active Substance: ESTRADIOL
     Indication: VULVOVAGINAL DRYNESS
     Dosage: ONCE A DAY AT NIGHT
     Route: 067

REACTIONS (4)
  - Abdominal pain [Recovered/Resolved]
  - Wrong technique in product usage process [Not Recovered/Not Resolved]
  - Abdominal distension [Recovered/Resolved]
  - Breast pain [Recovered/Resolved]
